FAERS Safety Report 21108111 (Version 2)
Quarter: 2022Q3

REPORT INFORMATION
  Report Type: Spontaneous
  Country: US (occurrence: US)
  Receive Date: 20220720
  Receipt Date: 20220911
  Transmission Date: 20221026
  Serious: No
  Sender: FDA-Public Use
  Company Number: US-SANOFI-01184512

PATIENT
  Age: 68 Year
  Sex: Female

DRUGS (1)
  1. AUBAGIO [Suspect]
     Active Substance: TERIFLUNOMIDE
     Indication: Multiple sclerosis
     Dosage: 14 MG, Q12D
     Route: 048
     Dates: start: 20220715

REACTIONS (4)
  - Movement disorder [Unknown]
  - Fall [Not Recovered/Not Resolved]
  - Foot amputation [Not Recovered/Not Resolved]
  - Inappropriate schedule of product administration [Unknown]
